FAERS Safety Report 8964067 (Version 1)
Quarter: 2012Q4

REPORT INFORMATION
  Report Type: 
  Country: US (occurrence: US)
  Receive Date: 20121214
  Receipt Date: 20121214
  Transmission Date: 20130627
  Serious: Yes (Other)
  Sender: FDA-Public Use
  Company Number: US-PFIZER INC-2012312993

PATIENT
  Age: 85 Year
  Sex: Male
  Weight: 92 kg

DRUGS (10)
  1. SUTENT [Suspect]
     Indication: METASTATIC RENAL CELL CARCINOMA
     Dosage: UNK
     Dates: start: 20121109
  2. LOSARTAN [Concomitant]
     Dosage: 50 mg, Daily
  3. CARVEDILOL [Concomitant]
     Dosage: 12.5 mg, 2x/day
  4. FUROSEMIDE [Concomitant]
     Dosage: 80 mg, Daily
  5. SIMVASTATIN [Concomitant]
     Dosage: 40 mg, every PM
  6. GLIPIZIDE [Concomitant]
     Dosage: 10 mg, Daily
  7. ACTOS [Concomitant]
     Dosage: 15 mg, Daily
  8. FERREX [Concomitant]
     Dosage: 150 mg, 1x/day
  9. TRAZODONE [Concomitant]
     Indication: SLEEP DIFFICULT
     Dosage: 50 mg, 1-2 tabs at HS
  10. TEMAZEPAM [Concomitant]
     Indication: SLEEP DIFFICULT
     Dosage: 15 mg, 1-2 tabs at HS

REACTIONS (3)
  - Haematuria [Unknown]
  - Dysuria [Unknown]
  - Diarrhoea [Unknown]
